FAERS Safety Report 12220177 (Version 1)
Quarter: 2016Q1

REPORT INFORMATION
  Report Type: Spontaneous
  Country: US (occurrence: None)
  Receive Date: 20160329
  Receipt Date: 20160329
  Transmission Date: 20160526
  Serious: Yes (Hospitalization)
  Sender: FDA-Public Use
  Company Number: None

PATIENT
  Age: 70 Year
  Sex: Male
  Weight: 68.8 kg

DRUGS (1)
  1. RITUXIMAB (MOAB C2B8 ANTI CD20, CHIMERIC) [Suspect]
     Active Substance: RITUXIMAB
     Dates: end: 20160209

REACTIONS (6)
  - Respiratory failure [None]
  - Acute kidney injury [None]
  - Ischaemic hepatitis [None]
  - Septic shock [None]
  - Metabolic acidosis [None]
  - Hepatic function abnormal [None]

NARRATIVE: CASE EVENT DATE: 20160210
